FAERS Safety Report 6857259-0 (Version None)
Quarter: 2010Q3

REPORT INFORMATION
  Report Type: 
  Country: None (occurrence: None)
  Receive Date: 20100719
  Receipt Date: 20100709
  Transmission Date: 20110219
  Serious: Yes (Hospitalization, Other)
  Sender: FDA-Public Use
  Company Number: FR-JNJFOC-20100703786

PATIENT
  Age: 65 Year
  Sex: Female

DRUGS (9)
  1. DITROPAN [Suspect]
     Indication: PRODUCT USED FOR UNKNOWN INDICATION
     Route: 048
  2. OMEPRAZOLE [Suspect]
     Indication: PRODUCT USED FOR UNKNOWN INDICATION
     Route: 048
  3. STABLON [Suspect]
     Indication: PRODUCT USED FOR UNKNOWN INDICATION
     Route: 048
  4. LORAZEPAM [Suspect]
     Indication: PRODUCT USED FOR UNKNOWN INDICATION
     Route: 048
  5. EQUANIL [Concomitant]
     Route: 065
  6. KARDEGIC [Concomitant]
     Route: 065
  7. SULFARLEM [Concomitant]
     Route: 065
  8. PIASCLEDINE [Concomitant]
     Route: 065
  9. GAVISCON(ALUMINIUM HYDROXIDE GEL, DRIED MAGNESIUM TRISILICATE) [Concomitant]
     Route: 065

REACTIONS (5)
  - ANTICHOLINERGIC SYNDROME [None]
  - BLADDER DILATATION [None]
  - CONSTIPATION [None]
  - DRY MOUTH [None]
  - HYPONATRAEMIA [None]
